FAERS Safety Report 9415360 (Version 2)
Quarter: 2013Q3

REPORT INFORMATION
  Report Type: Spontaneous
  Country: PL (occurrence: PL)
  Receive Date: 20130723
  Receipt Date: 20130729
  Transmission Date: 20140515
  Serious: Yes (Other)
  Sender: FDA-Public Use
  Company Number: PHHY2013PL072310

PATIENT
  Age: 4 Year
  Sex: Male

DRUGS (8)
  1. CICLOSPORIN [Suspect]
     Indication: NEPHROTIC SYNDROME
  2. SOLU-MEDROL [Suspect]
     Dosage: 15 MG/KG, UNK
  3. RAMIPRIL [Suspect]
  4. LOSARTAN [Suspect]
  5. MYCOPHENOLATE MOFETIL [Suspect]
  6. PROTON PUMP INHIBITORS [Concomitant]
  7. FOLIC ACID [Concomitant]
  8. IRON [Concomitant]

REACTIONS (4)
  - Anaemia [Unknown]
  - Renal impairment [Unknown]
  - Proteinuria [Unknown]
  - Drug ineffective [Unknown]
